FAERS Safety Report 7485599-3 (Version None)
Quarter: 2011Q2

REPORT INFORMATION
  Report Type: 
  Country: None (occurrence: None)
  Receive Date: 20110517
  Receipt Date: 20101111
  Transmission Date: 20111010
  Serious: Yes (Other)
  Sender: FDA-Public Use
  Company Number: DE-GENENTECH-292854

PATIENT
  Sex: Female

DRUGS (6)
  1. FENISTIL [Concomitant]
     Indication: PRODUCT USED FOR UNKNOWN INDICATION
  2. CORNEREGEL [Concomitant]
     Indication: PRODUCT USED FOR UNKNOWN INDICATION
  3. LUCENTIS [Suspect]
     Indication: AGE-RELATED MACULAR DEGENERATION
     Dosage: UNK
     Route: 031
     Dates: start: 20090924
  4. ARTIFICIAL TEARS [Concomitant]
     Indication: PRODUCT USED FOR UNKNOWN INDICATION
  5. AMLODIPINE BESYLATE [Concomitant]
     Indication: PRODUCT USED FOR UNKNOWN INDICATION
  6. FLOXAL [Concomitant]
     Indication: PRODUCT USED FOR UNKNOWN INDICATION

REACTIONS (13)
  - EYE PAIN [None]
  - SPEECH DISORDER [None]
  - DRY EYE [None]
  - HEMICEPHALALGIA [None]
  - NAUSEA [None]
  - SYNCOPE [None]
  - EYE INFLAMMATION [None]
  - GAIT DISTURBANCE [None]
  - FOREIGN BODY SENSATION IN EYES [None]
  - HEADACHE [None]
  - DIZZINESS [None]
  - VISUAL ACUITY REDUCED [None]
  - VISUAL IMPAIRMENT [None]
